FAERS Safety Report 6399736-5 (Version None)
Quarter: 2009Q4

REPORT INFORMATION
  Report Type: 
  Country: None (occurrence: None)
  Receive Date: 20091014
  Receipt Date: 20091008
  Transmission Date: 20100525
  Serious: Yes (Hospitalization, Other)
  Sender: FDA-Public Use
  Company Number: JP-BRISTOL-MYERS SQUIBB COMPANY-13585922

PATIENT
  Age: 49 Year
  Sex: Male

DRUGS (12)
  1. CYCLOPHOSPHAMIDE [Suspect]
     Indication: B-CELL LYMPHOMA
     Dates: start: 20060601
  2. BARACLUDE [Suspect]
     Indication: HEPATITIS B
     Route: 048
     Dates: start: 20060925, end: 20061011
  3. DOXORUBICIN HCL [Suspect]
     Indication: B-CELL LYMPHOMA
     Dates: start: 20060601
  4. VINCRISTINE [Suspect]
     Indication: B-CELL LYMPHOMA
     Dates: start: 20060601
  5. PREDNISOLONE [Suspect]
     Indication: B-CELL LYMPHOMA
     Dates: start: 20060601
  6. RITUXAN [Suspect]
     Route: 041
     Dates: start: 20060711, end: 20061003
  7. ATORVASTATIN [Suspect]
     Indication: HYPERLIPIDAEMIA
  8. BAKTAR [Suspect]
     Indication: INFECTION PROPHYLAXIS
     Route: 048
     Dates: start: 20060615, end: 20061018
  9. MUCOSTA [Suspect]
     Indication: INFECTION PROPHYLAXIS
     Route: 048
     Dates: start: 20060615, end: 20061018
  10. DIFLUCAN [Suspect]
     Indication: INFECTION PROPHYLAXIS
     Dates: start: 20060615, end: 20061018
  11. NEO-MINOPHAGEN C [Concomitant]
     Route: 042
     Dates: start: 20060731, end: 20061120
  12. LENDORMIN [Concomitant]
     Route: 048

REACTIONS (2)
  - HEPATITIS B [None]
  - LIVER INJURY [None]
